FAERS Safety Report 19844908 (Version 2)
Quarter: 2021Q3

REPORT INFORMATION
  Report Type: Spontaneous
  Country: US (occurrence: US)
  Receive Date: 20210917
  Receipt Date: 20210923
  Transmission Date: 20211014
  Serious: Yes (Other)
  Sender: FDA-Public Use
  Company Number: US-AMGEN-USASP2021142258

PATIENT
  Age: 60 Year
  Sex: Male

DRUGS (12)
  1. NURTEC ODT [Concomitant]
     Active Substance: RIMEGEPANT SULFATE
     Indication: MIGRAINE
     Dosage: 75 MILLIGRAM, AS NECESSARY
     Route: 048
     Dates: start: 202106
  2. COLLAGEN COMPLEX [Concomitant]
     Indication: JOINT STIFFNESS
     Dosage: 1650 MILLIGRAM, QD
     Dates: start: 2021
  3. AIMOVIG [Suspect]
     Active Substance: ERENUMAB-AOOE
     Indication: MIGRAINE PROPHYLAXIS
     Dosage: 70 MILLIGRAM, QMO
     Route: 058
     Dates: start: 202106
  4. ANDROGEL [Concomitant]
     Active Substance: TESTOSTERONE
     Indication: BLOOD TESTOSTERONE ABNORMAL
     Dosage: 1.62 PERCENT, QD
     Dates: start: 2011
  5. VITAMIN B2 [Concomitant]
     Active Substance: RIBOFLAVIN
     Indication: MIGRAINE PROPHYLAXIS
     Dosage: 400 MILLIGRAM, QD
     Dates: start: 2019
  6. AIMOVIG [Suspect]
     Active Substance: ERENUMAB-AOOE
     Dosage: 70 MILLIGRAM, QMO
     Route: 058
  7. AIMOVIG [Suspect]
     Active Substance: ERENUMAB-AOOE
     Dosage: 70 MILLIGRAM, QMO
     Route: 058
  8. COVID?19 VACCINE NOS. [Suspect]
     Active Substance: COVID-19 VACCINE NOS
     Indication: PRODUCT USED FOR UNKNOWN INDICATION
     Route: 065
  9. TIVICAY [Concomitant]
     Active Substance: DOLUTEGRAVIR SODIUM
     Indication: HIV INFECTION
     Dosage: 50 MILLIGRAM, QD
     Dates: start: 2006
  10. VITAMIN D3 [Concomitant]
     Active Substance: CHOLECALCIFEROL
     Indication: VITAMIN D DEFICIENCY
     Dosage: 1000, UNK, QD
  11. VOLTAREN [DICLOFENAC] [Concomitant]
     Active Substance: DICLOFENAC SODIUM
     Dosage: 1 PERCENT
     Route: 061
     Dates: start: 2001
  12. FEVERFEW [TANACETUM PARTHENIUM] [Concomitant]
     Active Substance: FEVERFEW\TANACETUM PARTHENIUM
     Indication: MIGRAINE
     Dosage: 380 MILLIGRAM, QD
     Dates: start: 2019

REACTIONS (3)
  - Therapeutic product effect delayed [Unknown]
  - Erythema multiforme [Recovering/Resolving]
  - Gastrointestinal disorder [Recovered/Resolved]

NARRATIVE: CASE EVENT DATE: 2021
